FAERS Safety Report 21867908 (Version 4)
Quarter: 2023Q2

REPORT INFORMATION
  Report Type: Report from Study
  Country: EG (occurrence: EG)
  Receive Date: 20230116
  Receipt Date: 20230424
  Transmission Date: 20230722
  Serious: Yes (Other)
  Sender: FDA-Public Use
  Company Number: EG-002147023-NVSC2023EG008383

PATIENT
  Sex: Female

DRUGS (11)
  1. ENTRESTO [Suspect]
     Active Substance: SACUBITRIL\VALSARTAN
     Indication: Cardiac failure
     Dosage: 1 DOSAGE FORM, BID (50 MG (UNKNOWN EXACT DATE BY REPORTER COULD BE 4 OR 5 MONTHS AGO OR MORE AS PER
     Route: 048
     Dates: start: 20210617
  2. ENTRESTO [Suspect]
     Active Substance: SACUBITRIL\VALSARTAN
     Dosage: 100 MG, BID (ONE TABLET)
     Route: 048
  3. ENTRESTO [Suspect]
     Active Substance: SACUBITRIL\VALSARTAN
     Dosage: 0.5 DOSAGE FORM, BID (100 MG (ONE TABLET))
     Route: 048
  4. ENTRESTO [Suspect]
     Active Substance: SACUBITRIL\VALSARTAN
     Dosage: 100 MG (GENERAL START DATE  AND END DATE ARE AS FOLLOWS BUT HE DIDN^T SPECIFY THE DOSES  START DATES
     Route: 048
  5. ENTRESTO [Suspect]
     Active Substance: SACUBITRIL\VALSARTAN
     Dosage: 50 MG, BID (ONE TABLET)
     Route: 048
     Dates: start: 202301
  6. ENTRESTO [Suspect]
     Active Substance: SACUBITRIL\VALSARTAN
     Dosage: 100 MG, BID
     Route: 048
  7. NEBIVOLOL [Concomitant]
     Active Substance: NEBIVOLOL
     Indication: Product used for unknown indication
     Dosage: UNK
     Route: 065
  8. BISOPROLOL FUMARATE [Concomitant]
     Active Substance: BISOPROLOL FUMARATE
     Indication: Cardiac failure
     Dosage: UNK, BID (ONE TABLET IN THE MORNING AND ONE TABLET IN THE EVENING)
     Route: 065
     Dates: start: 20230101
  9. APIXABAN [Concomitant]
     Active Substance: APIXABAN
     Indication: Blood disorder
     Dosage: UNK UNK, QD (ONE TABLET IN THE MORNING AND ONE TABLET IN THE EVENING)
     Route: 065
     Dates: start: 20230101
  10. TORSEMIDE [Concomitant]
     Active Substance: TORSEMIDE
     Indication: Hypotension
     Dosage: UNK (STARTED MORE THAN ONE YEAR AGO)
     Route: 065
  11. TORSEMIDE [Concomitant]
     Active Substance: TORSEMIDE
     Indication: Polyuria

REACTIONS (18)
  - Haemothorax [Recovering/Resolving]
  - Hypotension [Recovering/Resolving]
  - Oedema peripheral [Recovering/Resolving]
  - Pulmonary oedema [Recovering/Resolving]
  - Dyspnoea [Recovering/Resolving]
  - Poor quality sleep [Recovering/Resolving]
  - Heart rate increased [Recovering/Resolving]
  - Suffocation feeling [Recovering/Resolving]
  - Skin haemorrhage [Recovering/Resolving]
  - Cough [Not Recovered/Not Resolved]
  - Renal impairment [Not Recovered/Not Resolved]
  - Drug ineffective [Recovering/Resolving]
  - Drug intolerance [Unknown]
  - Oedema [Unknown]
  - Cardiac disorder [Unknown]
  - Blood glucose increased [Unknown]
  - Fatigue [Unknown]
  - Wrong technique in product usage process [Unknown]
